FAERS Safety Report 26154479 (Version 1)
Quarter: 2025Q4

REPORT INFORMATION
  Report Type: Spontaneous
  Country: US (occurrence: US)
  Receive Date: 20251215
  Receipt Date: 20251215
  Transmission Date: 20260117
  Serious: Yes (Hospitalization)
  Sender: ROCHE
  Company Number: US-ROCHE-10000456332

PATIENT
  Sex: Female

DRUGS (4)
  1. XOLAIR [Suspect]
     Active Substance: OMALIZUMAB
     Indication: Asthma
     Dosage: INJECT 1 SYRINGE UNDER THE SKIN EVERY FOUR WEEKS??STRENGTH: 150 MG/ML
     Route: 058
     Dates: start: 20250521
  2. XOLAIR [Suspect]
     Active Substance: OMALIZUMAB
  3. Amiloride  tab 5 mg [Concomitant]
  4. Zinc sulphate Tab 220 mg [Concomitant]

REACTIONS (3)
  - Pneumonia [Unknown]
  - Bronchitis [Unknown]
  - Cardiac failure [Unknown]
